FAERS Safety Report 7522938-9 (Version None)
Quarter: 2011Q2

REPORT INFORMATION
  Report Type: 
  Country: None (occurrence: None)
  Receive Date: 20110603
  Receipt Date: 20110524
  Transmission Date: 20111010
  Serious: Yes (Hospitalization, Other)
  Sender: FDA-Public Use
  Company Number: JP-SHIRE-SPV1-2009-02553

PATIENT
  Sex: Male

DRUGS (24)
  1. ADALAT CC [Concomitant]
     Indication: PRODUCT USED FOR UNKNOWN INDICATION
     Dosage: 40 MG, UNKNOWN
     Route: 048
  2. EPOGIN [Concomitant]
     Indication: PRODUCT USED FOR UNKNOWN INDICATION
     Dosage: 750 IU, UNK
     Route: 042
  3. OXAROL [Concomitant]
     Dosage: 10 UG, UNKNOWN
     Route: 042
     Dates: start: 20100305
  4. LANTHANUM CARBONATE [Suspect]
     Indication: HYPERPHOSPHATAEMIA
     Dosage: 1500 MG, 1X/DAY:QD (AFTER MEALS)
     Route: 048
     Dates: start: 20090803
  5. CALTAN [Concomitant]
     Dosage: 1500 MG, UNKNOWN
     Route: 048
     Dates: start: 20101006
  6. RENAGEL                            /01459901/ [Concomitant]
     Indication: HYPERPHOSPHATAEMIA
     Dosage: 3000 MG, UNKNOWN
     Route: 048
     Dates: end: 20090517
  7. CALTAN [Concomitant]
     Indication: HYPERPHOSPHATAEMIA
     Dosage: 3000 MG, UNKNOWN
     Route: 048
     Dates: end: 20090816
  8. CALTAN [Concomitant]
     Dosage: 4500 MG, UNKNOWN
     Route: 048
     Dates: start: 20090817, end: 20101005
  9. DIART [Concomitant]
     Indication: PRODUCT USED FOR UNKNOWN INDICATION
     Dosage: 60 MG, UNKNOWN
     Route: 048
  10. OXAROL [Concomitant]
     Indication: PRODUCT USED FOR UNKNOWN INDICATION
     Dosage: 2.5 UG, UNKNOWN
     Route: 042
     Dates: start: 20100122, end: 20100305
  11. OXAROL [Concomitant]
     Dosage: 15 ?G, UNKNOWN
     Route: 042
     Dates: start: 20100514, end: 20100615
  12. RENAGEL                            /01459901/ [Concomitant]
     Dosage: 1500 MG, UNKNOWN
     Dates: start: 20090518, end: 20090531
  13. ENALAPRIL MALEATE [Concomitant]
     Indication: PRODUCT USED FOR UNKNOWN INDICATION
     Dosage: 2.5 MG, UNKNOWN
     Route: 048
  14. METOPROLOL TARTRATE [Concomitant]
     Indication: PRODUCT USED FOR UNKNOWN INDICATION
     Dosage: 40 MG, UNKNOWN
     Route: 048
  15. OXAROL [Concomitant]
     Dosage: 15 ?G, UNKNOWN
     Route: 042
     Dates: start: 20100806
  16. PLAVIX [Concomitant]
     Indication: PRODUCT USED FOR UNKNOWN INDICATION
     Dosage: 75 MG, UNKNOWN
     Route: 048
  17. OXAROL [Concomitant]
     Dosage: 20 ?G, UNKNOWN
     Route: 042
     Dates: start: 20100616, end: 20100805
  18. RENAGEL                            /01459901/ [Concomitant]
     Dosage: 1500 MG, UNKNOWN
     Route: 048
     Dates: start: 20090914, end: 20101203
  19. ONEALFA [Concomitant]
     Indication: PRODUCT USED FOR UNKNOWN INDICATION
     Dosage: .25 UG, UNK
     Route: 048
     Dates: start: 20090623, end: 20091105
  20. ASPIRIN [Concomitant]
     Indication: PRODUCT USED FOR UNKNOWN INDICATION
     Dosage: 100 MG, UNKNOWN
     Route: 048
  21. LANTHANUM CARBONATE [Suspect]
     Dosage: 750 MG, 1X/DAY:QD (AFTER MEALS)
     Route: 048
     Dates: start: 20090420, end: 20090802
  22. PROTECADIN [Concomitant]
     Indication: PRODUCT USED FOR UNKNOWN INDICATION
     Dosage: 10 MG, UNKNOWN
     Route: 048
  23. ALFAROL [Concomitant]
     Indication: PRODUCT USED FOR UNKNOWN INDICATION
     Dosage: 0.5 UG, UNKNOWN
     Route: 048
     Dates: start: 20091106, end: 20100122
  24. OXAROL [Concomitant]
     Dosage: 12.5 ?G, UNKNOWN
     Route: 042
     Dates: start: 20100409, end: 20100513

REACTIONS (5)
  - SHUNT MALFUNCTION [None]
  - HYPOCALCAEMIA [None]
  - CHEST DISCOMFORT [None]
  - CARDIAC FAILURE [None]
  - PNEUMONIA [None]
